FAERS Safety Report 9192363 (Version 1)
Quarter: 2013Q1

REPORT INFORMATION
  Report Type: Spontaneous
  Country: DE (occurrence: DE)
  Receive Date: 20130327
  Receipt Date: 20130327
  Transmission Date: 20140127
  Serious: Yes (Hospitalization)
  Sender: FDA-Public Use
  Company Number: DE-JNJFOC-20130208342

PATIENT
  Sex: Female
  Weight: 76 kg

DRUGS (5)
  1. XEPLION [Suspect]
     Indication: BIPOLAR DISORDER
     Route: 030
     Dates: start: 20130118, end: 20130118
  2. XEPLION [Suspect]
     Indication: BIPOLAR DISORDER
     Route: 030
     Dates: start: 20130218
  3. XEPLION [Suspect]
     Indication: BIPOLAR DISORDER
     Route: 030
     Dates: start: 20121221, end: 20121221
  4. XEPLION [Suspect]
     Indication: BIPOLAR DISORDER
     Route: 030
     Dates: start: 20121214, end: 20121214
  5. VALPROIC ACID [Concomitant]
     Indication: BIPOLAR DISORDER
     Route: 065
     Dates: start: 20130102

REACTIONS (3)
  - Depressed mood [Recovered/Resolved]
  - Speech disorder [Recovered/Resolved]
  - Lethargy [Recovered/Resolved]
